FAERS Safety Report 5236620-4 (Version None)
Quarter: 2007Q1

REPORT INFORMATION
  Report Type: 
  Country: None (occurrence: None)
  Receive Date: 20070208
  Receipt Date: 20070201
  Transmission Date: 20070707
  Serious: Yes (Hospitalization, Other)
  Sender: FDA-Public Use
  Company Number: OSCN-PR-0701S-0024

PATIENT
  Age: 50 Year
  Sex: Male

DRUGS (1)
  1. OMNISCAN [Suspect]
     Indication: PAIN IN EXTREMITY
     Dosage: 18 ML, SINGLE DOSE, I.T.
     Route: 038
     Dates: start: 20070110, end: 20070110

REACTIONS (11)
  - BLOOD PRESSURE INCREASED [None]
  - CONFUSIONAL STATE [None]
  - DEPRESSED LEVEL OF CONSCIOUSNESS [None]
  - DISORIENTATION [None]
  - DYSPNOEA [None]
  - GRAND MAL CONVULSION [None]
  - MOTOR DYSFUNCTION [None]
  - NEUROLOGICAL SYMPTOM [None]
  - RESPIRATORY DISORDER [None]
  - SPEECH DISORDER [None]
  - SWELLING [None]
